FAERS Safety Report 21386506 (Version 2)
Quarter: 2022Q4

REPORT INFORMATION
  Report Type: Spontaneous
  Country: US (occurrence: US)
  Receive Date: 20220928
  Receipt Date: 20221028
  Transmission Date: 20230112
  Serious: No
  Sender: FDA-Public Use
  Company Number: US-Calliditas-2022CAL00328

PATIENT
  Age: 64 Year
  Sex: Female

DRUGS (2)
  1. TARPEYO [Suspect]
     Active Substance: BUDESONIDE
     Indication: IgA nephropathy
     Dosage: 16 MG (4 MG CAPSULES) ONCE DAILY
     Route: 048
     Dates: start: 20220811
  2. LOSARTAN [Suspect]
     Active Substance: LOSARTAN
     Indication: Product used for unknown indication

REACTIONS (12)
  - Fatigue [Unknown]
  - Head discomfort [Unknown]
  - Cushingoid [Unknown]
  - Diffuse alopecia [Unknown]
  - Swelling [Unknown]
  - Peripheral vascular disorder [Unknown]
  - Diarrhoea [Unknown]
  - Hypoaesthesia [Unknown]
  - Peripheral swelling [Unknown]
  - Petechiae [Unknown]
  - Palpitations [Unknown]
  - Hypertension [Not Recovered/Not Resolved]
